FAERS Safety Report 5453160-8 (Version None)
Quarter: 2007Q3

REPORT INFORMATION
  Report Type: 
  Country: None (occurrence: None)
  Receive Date: 20070914
  Receipt Date: 20070904
  Transmission Date: 20080115
  Serious: Yes (Hospitalization)
  Sender: FDA-Public Use
  Company Number: US-GENENTECH-247184

PATIENT
  Sex: Female
  Weight: 79.55 kg

DRUGS (6)
  1. EFALIZUMAB [Suspect]
     Indication: PSORIASIS
     Dosage: 1 MG, 1/WEEK
     Route: 058
     Dates: start: 20041221
  2. TOPICAL STEROID NOS [Concomitant]
     Indication: PSORIASIS
     Dosage: UNK, QD
     Dates: start: 20051220
  3. DYAZIDE [Concomitant]
     Indication: DRUG USE FOR UNKNOWN INDICATION
     Dosage: 1 TABLET, QD
  4. CALCIUM [Concomitant]
     Indication: DRUG USE FOR UNKNOWN INDICATION
     Dosage: 500 MG, TID
     Route: 048
  5. ALLEGRA D 24 HOUR [Concomitant]
     Indication: DRUG USE FOR UNKNOWN INDICATION
     Dosage: 1 TABLET, QD
  6. BENTYL [Concomitant]
     Indication: IRRITABLE BOWEL SYNDROME
     Dosage: 1 TABLET, QD

REACTIONS (1)
  - PULMONARY EMBOLISM [None]
